FAERS Safety Report 9719016 (Version 3)
Quarter: 2014Q2

REPORT INFORMATION
  Report Type: Spontaneous
  Country: JP (occurrence: None)
  Receive Date: 20131126
  Receipt Date: 20140423
  Transmission Date: 20141212
  Serious: Yes (Other)
  Sender: FDA-Public Use
  Company Number: VAL_02833_2013

PATIENT
  Age: 64 Year
  Sex: Female
  Weight: 33 kg

DRUGS (3)
  1. PARLODEL (PARLODEL-BROMOCRIPTINE MESILATE) [Suspect]
     Indication: ECTOPIC ACTH SYNDROME
     Dosage: DF
     Route: 048
     Dates: start: 20130409, end: 20130418
  2. METYRAPONE [Suspect]
     Indication: HYPERCORTICOIDISM
     Dosage: DF ORAL
     Route: 048
     Dates: start: 201304
  3. POTASSIUM CHLORIDE [Suspect]
     Indication: HYPOKALAEMIA
     Dosage: (DF)

REACTIONS (8)
  - Atypical mycobacterial infection [None]
  - Blood pressure decreased [None]
  - Nausea [None]
  - Pyrexia [None]
  - Adrenal insufficiency [None]
  - C-reactive protein increased [None]
  - Infection [None]
  - Drug ineffective [None]
